FAERS Safety Report 9297491 (Version 1)
Quarter: 2013Q2

REPORT INFORMATION
  Report Type: Spontaneous
  Country: PT (occurrence: PT)
  Receive Date: 20130520
  Receipt Date: 20130520
  Transmission Date: 20140414
  Serious: Yes (Other)
  Sender: FDA-Public Use
  Company Number: PT-ACCORD-017622

PATIENT
  Age: 52 Year
  Sex: Male

DRUGS (2)
  1. TACROLIMUS [Suspect]
     Indication: IMMUNOSUPPRESSION
  2. MYCOPHENOLATE MOFETIL [Suspect]
     Indication: IMMUNOSUPPRESSION

REACTIONS (1)
  - Inflammatory bowel disease [Recovered/Resolved]
